FAERS Safety Report 5356339-9 (Version None)
Quarter: 2007Q2

REPORT INFORMATION
  Report Type: 
  Country: None (occurrence: None)
  Receive Date: 20070530
  Receipt Date: 20061218
  Transmission Date: 20071010
  Serious: Yes (Hospitalization)
  Sender: FDA-Public Use
  Company Number: US200609003902

PATIENT
  Age: 38 Year
  Sex: Female
  Weight: 65.8 kg

DRUGS (6)
  1. ZYPREXA [Suspect]
     Indication: DEPRESSION
     Dosage: 5 MG
     Dates: start: 20030301, end: 20061001
  2. WELLBUTRIN [Concomitant]
  3. TOFRANIL-PM (IMIPRAMINE EMBONATE) [Concomitant]
  4. EFFEXOR [Concomitant]
  5. AMITRIPTYLINE HCL [Concomitant]
  6. NORTRIPTYLINE HCL [Concomitant]

REACTIONS (2)
  - HYPERGLYCAEMIA [None]
  - PANCREATITIS [None]
